FAERS Safety Report 6669881-5 (Version None)
Quarter: 2010Q2

REPORT INFORMATION
  Report Type: 
  Country: None (occurrence: None)
  Receive Date: 20100406
  Receipt Date: 20100203
  Transmission Date: 20101027
  Serious: No
  Sender: FDA-Public Use
  Company Number: US-ALLERGAN-1000241US

PATIENT
  Age: 59 Year
  Sex: Female

DRUGS (2)
  1. LATISSE [Suspect]
     Indication: GROWTH OF EYELASHES
     Dosage: UNK
     Dates: start: 20090501
  2. FEMHRT [Concomitant]
     Indication: MENOPAUSE
     Dosage: 1 TAB

REACTIONS (2)
  - DRUG INEFFECTIVE [None]
  - MADAROSIS [None]
